FAERS Safety Report 13828636 (Version 3)
Quarter: 2017Q3

REPORT INFORMATION
  Report Type: Report from Study
  Country: ES (occurrence: ES)
  Receive Date: 20170803
  Receipt Date: 20170831
  Transmission Date: 20171127
  Serious: Yes (Death, Hospitalization)
  Sender: FDA-Public Use
  Company Number: ES-ROCHE-1960458

PATIENT
  Age: 65 Year
  Sex: Female
  Weight: 77.6 kg

DRUGS (8)
  1. OBINUTUZUMAB. [Suspect]
     Active Substance: OBINUTUZUMAB
     Indication: NEOPLASM MALIGNANT
     Dosage: MOST RECENT DOSE PRIOR TO EVENT: 21/JUN/2017
     Route: 042
     Dates: start: 20170621
  2. METAMIZOL [Concomitant]
     Active Substance: METAMIZOLE SODIUM
     Route: 065
     Dates: start: 20170723, end: 20170726
  3. KREON [Concomitant]
     Active Substance: PANCRELIPASE
  4. METAMIZOL [Concomitant]
     Active Substance: METAMIZOLE SODIUM
     Indication: URINARY TRACT INFECTION
     Route: 065
     Dates: start: 20170718, end: 20170720
  5. METAMIZOL [Concomitant]
     Active Substance: METAMIZOLE SODIUM
  6. PREGABALINE [Concomitant]
     Active Substance: PREGABALIN
  7. RO 6958688 (T-CELL BISPECIFIC MONOCLONAL ANTIBODY) [Suspect]
     Active Substance: INVESTIGATIONAL PRODUCT
     Indication: NEOPLASM MALIGNANT
     Dosage: MOST RECENT DOSE PRIOR TO EVENT: 04/JUL/2017 ?DELAYED 25/JUL/2017
     Route: 042
     Dates: start: 20170704
  8. METOCLOPRAMIDE. [Concomitant]
     Active Substance: METOCLOPRAMIDE

REACTIONS (4)
  - Sepsis [Fatal]
  - Urinary tract infection [Recovered/Resolved]
  - Pyrexia [Recovered/Resolved]
  - Fatigue [Recovered/Resolved]

NARRATIVE: CASE EVENT DATE: 20170704
